FAERS Safety Report 4303389-7 (Version None)
Quarter: 2004Q1

REPORT INFORMATION
  Report Type: 
  Country: None (occurrence: None)
  Receive Date: 20040223
  Receipt Date: 20040212
  Transmission Date: 20041129
  Serious: Yes (Life-Threatening, Hospitalization)
  Sender: FDA-Public Use
  Company Number: 04P-087-0250525-00

PATIENT
  Age: 13 Year
  Sex: Male
  Weight: 28 kg

DRUGS (3)
  1. BIAXIN [Suspect]
     Indication: GASTROENTERITIS
     Dosage: 150 MG, 2 IN 1D, PER ORAL
     Route: 048
     Dates: start: 20030929, end: 20031001
  2. SG [Concomitant]
  3. ANTIBIOTICS-RESISTANT LACTIC ACID BACTERIAE [Concomitant]

REACTIONS (4)
  - BLOOD PRESSURE DECREASED [None]
  - CYANOSIS [None]
  - RHABDOMYOLYSIS [None]
  - VOMITING [None]
